FAERS Safety Report 4714191-6 (Version None)
Quarter: 2005Q2

REPORT INFORMATION
  Report Type: 
  Country: None (occurrence: None)
  Receive Date: 20050630
  Receipt Date: 20050407
  Transmission Date: 20051028
  Serious: Yes (Hospitalization)
  Sender: FDA-Public Use
  Company Number: WAES 0504USA01219

PATIENT
  Age: 56 Year
  Sex: Female

DRUGS (2)
  1. HYZAAR [Suspect]
     Dosage: 100-25 MG/PO
     Route: 048
     Dates: start: 20040804
  2. DICLOFENAC [Concomitant]

REACTIONS (1)
  - LIVER FUNCTION TEST ABNORMAL [None]
